FAERS Safety Report 9258365 (Version 1)
Quarter: 2013Q2

REPORT INFORMATION
  Report Type: Spontaneous
  Country: US (occurrence: US)
  Receive Date: 20130426
  Receipt Date: 20130426
  Transmission Date: 20140414
  Serious: Yes (Hospitalization, Other)
  Sender: FDA-Public Use
  Company Number: US-PFIZER INC-2013126906

PATIENT
  Age: 7 Decade
  Sex: Female

DRUGS (2)
  1. VENLAFAXINE HCL [Suspect]
     Indication: DEPRESSION
     Dosage: 150 MG, UNK
  2. QUETIAPINE FUMARATE [Suspect]
     Indication: DEPRESSION
     Dosage: 300 MG, 1X/DAY

REACTIONS (4)
  - Grandiosity [Unknown]
  - Pressure of speech [Unknown]
  - Psychomotor hyperactivity [Unknown]
  - Sedation [Unknown]
